FAERS Safety Report 19666180 (Version 1)
Quarter: 2021Q3

REPORT INFORMATION
  Report Type: Spontaneous
  Country: DE (occurrence: DE)
  Receive Date: 20210806
  Receipt Date: 20210806
  Transmission Date: 20211014
  Serious: Yes (Other)
  Sender: FDA-Public Use
  Company Number: DE-TEVA-2021-DE-1938606

PATIENT
  Sex: Male

DRUGS (1)
  1. AMOXICILLIN RATIOPHARM 1000 MG FILMTABLETTEN [Suspect]
     Active Substance: AMOXICILLIN
     Indication: UPPER RESPIRATORY TRACT INFECTION BACTERIAL
     Route: 048
     Dates: start: 2021

REACTIONS (6)
  - Chromaturia [Unknown]
  - Pathogen resistance [Unknown]
  - Therapeutic product effect delayed [Unknown]
  - Pain [Unknown]
  - Renal pain [Unknown]
  - Discomfort [Unknown]

NARRATIVE: CASE EVENT DATE: 202107
